FAERS Safety Report 23724938 (Version 1)
Quarter: 2024Q2

REPORT INFORMATION
  Report Type: Spontaneous
  Country: GB (occurrence: GB)
  Receive Date: 20240410
  Receipt Date: 20240410
  Transmission Date: 20240716
  Serious: Yes (Other)
  Sender: FDA-Public Use
  Company Number: GB-MHRA-MED-202403241601059640-SNWGH

PATIENT
  Age: 50 Year
  Sex: Female
  Weight: 90 kg

DRUGS (2)
  1. METRONIDAZOLE [Suspect]
     Active Substance: METRONIDAZOLE
     Indication: Tooth abscess
     Dosage: 400 MILLIGRAM, 3 TIMES A DAY
     Route: 065
  2. AMOXICILLIN [Concomitant]
     Active Substance: AMOXICILLIN
     Indication: Tooth abscess
     Dosage: UNK
     Route: 065

REACTIONS (5)
  - Dizziness [Not Recovered/Not Resolved]
  - Headache [Not Recovered/Not Resolved]
  - Gait disturbance [Not Recovered/Not Resolved]
  - Tinnitus [Not Recovered/Not Resolved]
  - Nausea [Recovering/Resolving]
